FAERS Safety Report 4955869-9 (Version None)
Quarter: 2006Q1

REPORT INFORMATION
  Report Type: 
  Country: None (occurrence: None)
  Receive Date: 20060327
  Receipt Date: 20060327
  Transmission Date: 20060701
  Serious: Yes (Other)
  Sender: FDA-Public Use
  Company Number: None

PATIENT
  Sex: Male
  Weight: 239.5 kg

DRUGS (12)
  1. CYCLOBENZAPRINE HCL [Suspect]
     Indication: MUSCLE SPASMS
     Dosage: 1 TAB TID
     Dates: start: 20051117, end: 20051229
  2. ATROPINE AND DIPHENOXYLATE [Concomitant]
  3. BENZONATATE [Concomitant]
  4. CLINDAMYCIN [Concomitant]
  5. FLUOXETINE HCL [Concomitant]
  6. GATIFLOXACIN [Concomitant]
  7. GUAIFENESIN [Concomitant]
  8. VICODIN [Concomitant]
  9. PSYLLIUM [Concomitant]
  10. TRAZODONE HCL [Concomitant]
  11. VANCOMYCIN [Concomitant]
  12. WARFARIN [Concomitant]

REACTIONS (3)
  - COGNITIVE DETERIORATION [None]
  - DISTURBANCE IN ATTENTION [None]
  - HYPOTENSION [None]
